FAERS Safety Report 6489365-7 (Version None)
Quarter: 2009Q4

REPORT INFORMATION
  Report Type: 
  Country: None (occurrence: None)
  Receive Date: 20091210
  Receipt Date: 20091009
  Transmission Date: 20100525
  Serious: No
  Sender: FDA-Public Use
  Company Number: US-AMGEN-KDL368538

PATIENT
  Sex: Male

DRUGS (1)
  1. ENBREL [Suspect]
     Indication: PSORIASIS
     Route: 058
     Dates: start: 20090505

REACTIONS (7)
  - BURNING SENSATION [None]
  - HYPERHIDROSIS [None]
  - IMPAIRED HEALING [None]
  - INGUINAL HERNIA [None]
  - PAIN [None]
  - PRURITUS [None]
  - SUNBURN [None]
